FAERS Safety Report 8597921-5 (Version None)
Quarter: 2012Q3

REPORT INFORMATION
  Report Type: 
  Country: None (occurrence: None)
  Receive Date: 20120816
  Receipt Date: 20120810
  Transmission Date: 20120928
  Serious: Yes (Other)
  Sender: FDA-Public Use
  Company Number: US-ASTELLAS-2012US006883

PATIENT
  Age: 62 Year
  Sex: Male
  Weight: 84 kg

DRUGS (4)
  1. PROTONIX [Concomitant]
     Indication: GASTROOESOPHAGEAL REFLUX DISEASE
     Dosage: UNK
     Route: 048
     Dates: start: 20120501, end: 20120701
  2. ERLOTINIB HYDROCHLORIDE [Suspect]
     Indication: NON-SMALL CELL LUNG CANCER
     Dosage: 150 MG, UID/QD
     Route: 048
     Dates: start: 20120501
  3. IMODIUM [Concomitant]
     Indication: DIARRHOEA
     Dosage: UNK
     Route: 048
     Dates: start: 20120501
  4. ZOMETA [Concomitant]
     Indication: OSTEOPOROSIS
     Dosage: 1 DF, EVERY 28 DAYS
     Route: 042
     Dates: start: 20111001

REACTIONS (5)
  - DYSPEPSIA [None]
  - WEIGHT DECREASED [None]
  - DIARRHOEA [None]
  - HEPATIC NEOPLASM [None]
  - NAUSEA [None]
